FAERS Safety Report 9372362 (Version 2)
Quarter: 2014Q2

REPORT INFORMATION
  Report Type: Report from Study
  Country: US (occurrence: US)
  Receive Date: 20130627
  Receipt Date: 20140613
  Transmission Date: 20141212
  Serious: Yes (Life-Threatening, Hospitalization, Disabling, Other)
  Sender: FDA-Public Use
  Company Number: US-009507513-1002USA03964

PATIENT
  Age: 84 Year
  Sex: Male
  Weight: 86.41 kg

DRUGS (7)
  1. SIMVASTATIN [Suspect]
     Indication: ACUTE CORONARY SYNDROME
     Dosage: 40 MG, QD
     Route: 048
     Dates: start: 20070103
  2. FLOMAX (TAMSULOSIN HYDROCHLORIDE) [Concomitant]
     Dosage: TOTAL DAILY DOSE 0.4
     Route: 048
     Dates: start: 20080326
  3. FERROUS SULFATE [Concomitant]
     Dosage: TOTAL DAILY DOSE 325 MG
     Route: 048
     Dates: start: 20080328, end: 20080529
  4. PRILOSEC [Concomitant]
     Dosage: ONE TWICE A DAY
     Route: 048
     Dates: start: 20080425
  5. ZOCOR [Concomitant]
     Dosage: TOTAL DAILY DOSE 40
     Route: 048
     Dates: start: 20080501, end: 20090209
  6. ASMANEX [Concomitant]
     Dosage: TOTAL DAILY DOSE 220 ?G/INH
     Route: 055
     Dates: start: 20080505, end: 20080529
  7. NASONEX [Concomitant]
     Dosage: TOTAL DAILY DOSE 50 ?G/ACT
     Dates: start: 20080505, end: 20080529

REACTIONS (1)
  - Renal cancer [Not Recovered/Not Resolved]
